FAERS Safety Report 7376314-2 (Version None)
Quarter: 2011Q1

REPORT INFORMATION
  Report Type: 
  Country: None (occurrence: None)
  Receive Date: 20110325
  Receipt Date: 20110320
  Transmission Date: 20110831
  Serious: Yes (Other)
  Sender: FDA-Public Use
  Company Number: GR-BRISTOL-MYERS SQUIBB COMPANY-15620115

PATIENT
  Age: 60 Year
  Sex: Male

DRUGS (1)
  1. ONGLYZA [Suspect]
     Indication: TYPE 2 DIABETES MELLITUS
     Dosage: 1 DF = 1 TAB 5 MG
     Route: 048
     Dates: start: 20110301

REACTIONS (2)
  - CARDIAC FLUTTER [None]
  - RASH [None]
